FAERS Safety Report 7887811-5 (Version None)
Quarter: 2011Q4

REPORT INFORMATION
  Report Type: 
  Country: None (occurrence: None)
  Receive Date: 20111103
  Receipt Date: 20111026
  Transmission Date: 20120403
  Serious: Yes (Hospitalization)
  Sender: FDA-Public Use
  Company Number: DK-UCBSA-044428

PATIENT
  Age: 63 Year
  Sex: Male
  Weight: 92.7 kg

DRUGS (9)
  1. CALCIUM [Concomitant]
     Indication: PROPHYLAXIS
     Dates: start: 20080327
  2. METHOTREXATE [Concomitant]
     Dates: start: 20080327
  3. D-VITAMIN [Concomitant]
     Indication: PROPHYLAXIS
     Dates: start: 20080327
  4. CERTOLIZUMAB PEGOL [Suspect]
     Indication: RHEUMATOID ARTHRITIS
     Route: 058
     Dates: end: 20111026
  5. FOLIC ACID [Concomitant]
     Indication: PROPHYLAXIS
     Dosage: AS SUFFICIENT QUANTITY
     Dates: start: 20080327
  6. ACETAMINOPHEN [Concomitant]
     Indication: RHEUMATOID ARTHRITIS
     Dosage: AS NESSECARY
     Dates: start: 20050101
  7. METHOTREXATE [Concomitant]
     Indication: RHEUMATOID ARTHRITIS
     Dosage: AS NESSECARY
     Route: 048
     Dates: start: 20110302
  8. PREDNISOLONE [Concomitant]
     Indication: RHEUMATOID ARTHRITIS
     Dates: start: 20110302
  9. GADOTERIN ACID [Concomitant]
     Indication: RHEUMATOID ARTHRITIS
     Dates: start: 20111004, end: 20111004

REACTIONS (1)
  - EMBOLISM [None]
